FAERS Safety Report 22186474 (Version 2)
Quarter: 2023Q2

REPORT INFORMATION
  Report Type: Report from Study
  Country: ES (occurrence: ES)
  Receive Date: 20230407
  Receipt Date: 20230420
  Transmission Date: 20230722
  Serious: Yes (Other)
  Sender: FDA-Public Use
  Company Number: ES-ABBVIE-4719417

PATIENT
  Age: 75 Year
  Sex: Female
  Weight: 65 kg

DRUGS (7)
  1. UPADACITINIB [Suspect]
     Active Substance: UPADACITINIB
     Indication: Rheumatoid arthritis
     Route: 048
     Dates: start: 20210521
  2. Severe acute respiratory syndrome coronavirus 2 Vaccine [Concomitant]
     Indication: Product used for unknown indication
     Dates: start: 20211201, end: 20211201
  3. Severe acute respiratory syndrome coronavirus 2 Vaccine [Concomitant]
     Indication: Product used for unknown indication
     Dates: start: 20210513, end: 20210513
  4. Severe acute respiratory syndrome coronavirus 2 Vaccine [Concomitant]
     Indication: Product used for unknown indication
     Dates: start: 20210513, end: 20210513
  5. Severe acute respiratory syndrome coronavirus 2 Vaccine [Concomitant]
     Indication: Product used for unknown indication
     Dates: start: 20211201, end: 20211201
  6. CANDESARTAN CILEXETIL [Concomitant]
     Active Substance: CANDESARTAN CILEXETIL
     Indication: Hypertension
     Route: 048
  7. FOSAVANCE [Concomitant]
     Active Substance: ALENDRONATE SODIUM\CHOLECALCIFEROL
     Indication: Prophylaxis
     Route: 048
     Dates: start: 20201016

REACTIONS (1)
  - Phlebectomy [Recovered/Resolved]

NARRATIVE: CASE EVENT DATE: 20220331
